FAERS Safety Report 9805323 (Version 1)
Quarter: 2014Q1

REPORT INFORMATION
  Report Type: Spontaneous
  Country: NL (occurrence: None)
  Receive Date: 20140106
  Receipt Date: 20140106
  Transmission Date: 20141002
  Serious: Yes (Hospitalization)
  Sender: FDA-Public Use
  Company Number: FK201400001

PATIENT
  Age: 41 Year
  Sex: Male

DRUGS (3)
  1. BLEOMYCIN (MANUFACTURER UNKNOWN) (BLEOMYCIN) (BELOMYCIN) [Suspect]
     Indication: TESTIS CANCER
  2. ETOPOSIDE (ETOPOSIDE) [Concomitant]
  3. CISPLATIN (CISPLATIN) [Concomitant]

REACTIONS (7)
  - Pneumonitis [None]
  - Liver disorder [None]
  - Obliterative bronchiolitis [None]
  - Organising pneumonia [None]
  - Pulmonary fibrosis [None]
  - Liver abscess [None]
  - Drug-induced liver injury [None]
